FAERS Safety Report 4496596-4 (Version None)
Quarter: 2004Q4

REPORT INFORMATION
  Report Type: 
  Country: None (occurrence: None)
  Receive Date: 20041109
  Receipt Date: 20041026
  Transmission Date: 20050328
  Serious: Yes (Death, Hospitalization)
  Sender: FDA-Public Use
  Company Number: US-AMGEN-US097117

PATIENT
  Sex: Female

DRUGS (1)
  1. ETANERCEPT [Suspect]
     Indication: RHEUMATOID ARTHRITIS
     Route: 058
     Dates: start: 19970917, end: 20040405

REACTIONS (7)
  - BACTERAEMIA [None]
  - FEMORAL ARTERY OCCLUSION [None]
  - ILIAC ARTERY THROMBOSIS [None]
  - PERIPHERAL ISCHAEMIA [None]
  - PNEUMOCOCCAL BACTERAEMIA [None]
  - PNEUMONIA [None]
  - RESPIRATORY FAILURE [None]
